FAERS Safety Report 26042933 (Version 1)
Quarter: 2025Q4

REPORT INFORMATION
  Report Type: Spontaneous
  Country: US (occurrence: US)
  Receive Date: 20251113
  Receipt Date: 20251113
  Transmission Date: 20260117
  Serious: No
  Sender: MYLAN
  Company Number: US-MYLANLABS-2025M1094073

PATIENT
  Age: 57 Year
  Sex: Male
  Weight: 86.18 kg

DRUGS (4)
  1. WIXELA INHUB [Suspect]
     Active Substance: FLUTICASONE PROPIONATE\SALMETEROL XINAFOATE
     Indication: Asthma
     Dosage: 100 MICROGRAM, QD (APPLIED ONE PUFF ONCE A DAY)
     Dates: start: 20251031
  2. WIXELA INHUB [Suspect]
     Active Substance: FLUTICASONE PROPIONATE\SALMETEROL XINAFOATE
     Indication: Bronchitis
     Dosage: 100 MICROGRAM, QD (APPLIED ONE PUFF ONCE A DAY)
     Route: 055
     Dates: start: 20251031
  3. WIXELA INHUB [Suspect]
     Active Substance: FLUTICASONE PROPIONATE\SALMETEROL XINAFOATE
     Dosage: 100 MICROGRAM, QD (APPLIED ONE PUFF ONCE A DAY)
     Route: 055
     Dates: start: 20251031
  4. WIXELA INHUB [Suspect]
     Active Substance: FLUTICASONE PROPIONATE\SALMETEROL XINAFOATE
     Dosage: 100 MICROGRAM, QD (APPLIED ONE PUFF ONCE A DAY)
     Dates: start: 20251031

REACTIONS (3)
  - Off label use [Unknown]
  - Device defective [Unknown]
  - Device delivery system issue [Unknown]

NARRATIVE: CASE EVENT DATE: 20251031
